FAERS Safety Report 5257873-2 (Version None)
Quarter: 2007Q1

REPORT INFORMATION
  Report Type: 
  Country: None (occurrence: None)
  Receive Date: 20070307
  Receipt Date: 20060929
  Transmission Date: 20070707
  Serious: Yes (Other)
  Sender: FDA-Public Use
  Company Number: US-GLAXOSMITHKLINE-A0621943A

PATIENT
  Age: 65 Year
  Sex: Female

DRUGS (5)
  1. REQUIP [Suspect]
     Indication: PARKINSON'S DISEASE
     Dosage: 3TAB THREE TIMES PER DAY
     Route: 048
  2. SINEMET [Concomitant]
  3. CARDIZEM [Concomitant]
  4. VITAMIN [Concomitant]
  5. VYTORIN [Concomitant]

REACTIONS (1)
  - HALLUCINATION [None]
